FAERS Safety Report 14155835 (Version 2)
Quarter: 2017Q4

REPORT INFORMATION
  Report Type: Report from Study
  Country: TW (occurrence: TW)
  Receive Date: 20171103
  Receipt Date: 20171107
  Transmission Date: 20180321
  Serious: Yes (Life-Threatening, Hospitalization, Other)
  Sender: FDA-Public Use
  Company Number: TW-PFIZER INC-2017470596

PATIENT

DRUGS (4)
  1. KETOCONAZOLE. [Interacting]
     Active Substance: KETOCONAZOLE
     Dosage: UNK
  2. ITRACONAZOLE. [Interacting]
     Active Substance: ITRACONAZOLE
     Dosage: UNK
  3. ERYTHROMYCIN. [Interacting]
     Active Substance: ERYTHROMYCIN
     Dosage: UNK
  4. FLUCONAZOLE. [Suspect]
     Active Substance: FLUCONAZOLE
     Dosage: UNK

REACTIONS (2)
  - Haemorrhage [Unknown]
  - Drug interaction [Unknown]
